FAERS Safety Report 23345567 (Version 1)
Quarter: 2023Q4

REPORT INFORMATION
  Report Type: Report from Study
  Country: SA (occurrence: SA)
  Receive Date: 20231228
  Receipt Date: 20231228
  Transmission Date: 20240110
  Serious: Yes (Other)
  Sender: FDA-Public Use
  Company Number: SA-Accord-397713

PATIENT

DRUGS (3)
  1. FLUOROURACIL [Suspect]
     Active Substance: FLUOROURACIL
     Indication: Squamous cell carcinoma of the oral cavity
     Dosage: CYCLE: 02
  2. CISPLATIN [Suspect]
     Active Substance: CISPLATIN
     Indication: Squamous cell carcinoma of the oral cavity
     Dosage: 2 CYCLE
  3. DOCETAXEL [Suspect]
     Active Substance: DOCETAXEL\DOCETAXEL ANHYDROUS
     Indication: Squamous cell carcinoma of the oral cavity
     Dosage: CYCLE: 02

REACTIONS (1)
  - Febrile neutropenia [Recovered/Resolved]
